FAERS Safety Report 4701132-0 (Version None)
Quarter: 2005Q2

REPORT INFORMATION
  Report Type: 
  Country: None (occurrence: None)
  Receive Date: 20050628
  Receipt Date: 20050622
  Transmission Date: 20051028
  Serious: Yes (Hospitalization)
  Sender: FDA-Public Use
  Company Number: US-GLAXOSMITHKLINE-A0563830A

PATIENT
  Sex: Female

DRUGS (4)
  1. LOTRONEX [Suspect]
     Indication: ILL-DEFINED DISORDER
     Route: 048
  2. CELEBREX [Concomitant]
  3. PREMARIN [Concomitant]
  4. MULTI-VITAMINS [Concomitant]

REACTIONS (1)
  - ASEPTIC NECROSIS BONE [None]
